FAERS Safety Report 9433655 (Version 1)
Quarter: 2013Q3

REPORT INFORMATION
  Report Type: Spontaneous
  Country: FR (occurrence: FR)
  Receive Date: 20130731
  Receipt Date: 20130731
  Transmission Date: 20140515
  Serious: Yes (Hospitalization)
  Sender: FDA-Public Use
  Company Number: FR-CELGENEUS-056-21880-13072721

PATIENT
  Sex: Male

DRUGS (7)
  1. REVLIMID [Suspect]
     Indication: PLASMA CELL MYELOMA
     Dosage: 15 MILLIGRAM
     Route: 048
     Dates: start: 201101, end: 201201
  2. REVLIMID [Suspect]
     Dosage: 15 MILLIGRAM
     Route: 048
     Dates: start: 201212
  3. DEXAMETHASONE [Suspect]
     Indication: PLASMA CELL MYELOMA
     Route: 048
     Dates: start: 201101
  4. DEXAMETHASONE [Suspect]
     Route: 048
     Dates: start: 201212
  5. DEXAMETHASONE [Suspect]
     Route: 048
     Dates: start: 2008, end: 2008
  6. VELCADE [Suspect]
     Indication: PLASMA CELL MYELOMA
     Route: 065
     Dates: start: 2008, end: 2008
  7. ALKERAN [Suspect]
     Indication: PLASMA CELL MYELOMA
     Route: 065
     Dates: start: 2008, end: 2008

REACTIONS (2)
  - Gastrointestinal tract adenoma [Not Recovered/Not Resolved]
  - Asthenia [Recovered/Resolved]
